FAERS Safety Report 6801089-2 (Version None)
Quarter: 2010Q2

REPORT INFORMATION
  Report Type: 
  Country: None (occurrence: None)
  Receive Date: 20100629
  Receipt Date: 20100629
  Transmission Date: 20101027
  Serious: Yes (Death)
  Sender: FDA-Public Use
  Company Number: US-JNJFOC-20030804829

PATIENT
  Sex: Female

DRUGS (10)
  1. REMICADE [Suspect]
     Indication: RHEUMATOID ARTHRITIS
     Route: 042
  2. REMICADE [Suspect]
     Route: 042
  3. REMICADE [Suspect]
     Route: 042
  4. DARVOCET-N 100 [Concomitant]
  5. MEDROXYPROGESTERONE ACETATE [Concomitant]
  6. PREMARIN [Concomitant]
  7. IBUPROFEN [Concomitant]
  8. PREDNISONE [Concomitant]
  9. CITRACAL D [Concomitant]
  10. FOSAMAX [Concomitant]

REACTIONS (34)
  - ACUTE RESPIRATORY DISTRESS SYNDROME [None]
  - ADVERSE DRUG REACTION [None]
  - ATRIAL FLUTTER [None]
  - BLOOD ELECTROLYTES ABNORMAL [None]
  - BRAIN HERNIATION [None]
  - CEREBRAL HAEMATOMA [None]
  - COMA [None]
  - DEHYDRATION [None]
  - DIARRHOEA [None]
  - DISCOMFORT [None]
  - GENERAL PHYSICAL HEALTH DETERIORATION [None]
  - HYPERGLYCAEMIA [None]
  - HYPOGLYCAEMIA [None]
  - HYPOXIA [None]
  - INFECTION [None]
  - LIVER FUNCTION TEST ABNORMAL [None]
  - MALNUTRITION [None]
  - METABOLIC ACIDOSIS [None]
  - NAUSEA [None]
  - OSTEOPENIA [None]
  - PAIN [None]
  - PARALYSIS [None]
  - PLEURAL EFFUSION [None]
  - PNEUMONIA LEGIONELLA [None]
  - RENAL FAILURE [None]
  - RESPIRATORY ARREST [None]
  - RESPIRATORY FAILURE [None]
  - THROMBOCYTOPENIA [None]
  - THROMBOSIS [None]
  - TINEA INFECTION [None]
  - UPPER GASTROINTESTINAL HAEMORRHAGE [None]
  - VOMITING [None]
  - WEIGHT DECREASED [None]
  - WHITE BLOOD CELL COUNT INCREASED [None]
